FAERS Safety Report 4607137-2 (Version None)
Quarter: 2005Q1

REPORT INFORMATION
  Report Type: 
  Country: None (occurrence: None)
  Receive Date: 20050310
  Receipt Date: 20050302
  Transmission Date: 20050727
  Serious: Yes (Other)
  Sender: FDA-Public Use
  Company Number: 2005-00772

PATIENT
  Age: 40 Year
  Sex: Male

DRUGS (2)
  1. LORAZEPAM [Suspect]
     Dosage: ORAL
     Route: 048
  2. LORAZEPAM [Suspect]
     Dosage: ORAL
     Route: 048

REACTIONS (2)
  - AGITATION [None]
  - PSYCHOTIC DISORDER [None]
